FAERS Safety Report 23358836 (Version 1)
Quarter: 2024Q1

REPORT INFORMATION
  Report Type: Spontaneous
  Country: ZA (occurrence: ZA)
  Receive Date: 20240102
  Receipt Date: 20240102
  Transmission Date: 20240409
  Serious: Yes (Other)
  Sender: FDA-Public Use
  Company Number: ZA-PFIZER INC-202300453148

PATIENT
  Age: 42 Year
  Sex: Female

DRUGS (4)
  1. METHOTREXATE SODIUM [Suspect]
     Active Substance: METHOTREXATE SODIUM
     Dosage: 20 MG, WEEKLY
     Dates: start: 19820101, end: 20130902
  2. INFLIXIMAB [Suspect]
     Active Substance: INFLIXIMAB
     Dosage: 200 MG
     Dates: start: 20060101, end: 20080201
  3. PREDNISONE [Concomitant]
     Active Substance: PREDNISONE
     Dosage: 5 MG, DAILY
     Dates: start: 19820101
  4. ENBREL [Concomitant]
     Active Substance: ETANERCEPT
     Dosage: 25 MG
     Dates: start: 20080501

REACTIONS (5)
  - Glaucoma [Unknown]
  - Foot operation [Unknown]
  - Hypertension [Unknown]
  - Osteopenia [Unknown]
  - Haemochromatosis [Unknown]

NARRATIVE: CASE EVENT DATE: 19880101
